FAERS Safety Report 8452350 (Version 3)
Quarter: 2012Q4

REPORT INFORMATION
  Report Type: 
  Country: US (occurrence: US)
  Receive Date: 20120312
  Receipt Date: 20120914
  Transmission Date: 20130627
  Serious: No
  Sender: FDA-Public Use
  Company Number: US-BIOGENIDEC-2012BI008213

PATIENT
  Age: 33 None
  Sex: Male

DRUGS (12)
  1. TYSABRI [Suspect]
     Indication: MULTIPLE SCLEROSIS
     Route: 042
     Dates: start: 20110124, end: 20120503
  2. AVONEX [Concomitant]
     Indication: MULTIPLE SCLEROSIS
     Route: 030
     Dates: start: 201207
  3. FLOMAX [Concomitant]
     Indication: URINARY TRACT DISORDER
     Dates: start: 200803
  4. TRAMADOL [Concomitant]
     Indication: PAIN
  5. NEURONTIN [Concomitant]
     Indication: PAIN
  6. ADVIL [Concomitant]
     Indication: PAIN
  7. MAXALT [Concomitant]
     Indication: MIGRAINE
  8. CYCLOBENZAPRINE [Concomitant]
     Indication: MUSCLE SPASMS
  9. LUNESTA [Concomitant]
     Indication: INSOMNIA
  10. XANAX [Concomitant]
     Indication: PANIC ATTACK
  11. XANAX [Concomitant]
     Indication: BURNING SENSATION
  12. NARCOTIC PAIN MEDICATION [Concomitant]
     Indication: PAIN

REACTIONS (17)
  - Rash pustular [Not Recovered/Not Resolved]
  - Paraesthesia [Not Recovered/Not Resolved]
  - Electrocardiogram abnormal [Not Recovered/Not Resolved]
  - Ear haemorrhage [Recovered/Resolved]
  - Oedema peripheral [Not Recovered/Not Resolved]
  - Vascular rupture [Not Recovered/Not Resolved]
  - Cerebral atrophy [Unknown]
  - Lymph gland infection [Not Recovered/Not Resolved]
  - Hypoaesthesia [Not Recovered/Not Resolved]
  - Haematochezia [Recovered/Resolved]
  - Fall [Not Recovered/Not Resolved]
  - Migraine [Not Recovered/Not Resolved]
  - Multiple sclerosis relapse [Recovered/Resolved]
  - Alopecia [Not Recovered/Not Resolved]
  - Chest pain [Not Recovered/Not Resolved]
  - Sinusitis [Not Recovered/Not Resolved]
  - Dizziness [Not Recovered/Not Resolved]
